FAERS Safety Report 6127069-0 (Version None)
Quarter: 2009Q1

REPORT INFORMATION
  Report Type: 
  Country: None (occurrence: None)
  Receive Date: 20090320
  Receipt Date: 20090312
  Transmission Date: 20090719
  Serious: Yes (Other)
  Sender: FDA-Public Use
  Company Number: DE-B.I. PHARMACEUTICALS,INC./RIDGEFIELD-2009-DE-02247DE

PATIENT
  Age: 71 Year
  Sex: Male
  Weight: 86 kg

DRUGS (4)
  1. MICARDIS HCT [Suspect]
     Indication: ESSENTIAL HYPERTENSION
     Dosage: 80 MG TELMISARTANE / 12,5 MG HCT
     Route: 048
  2. BELOC-ZOK MITE [Concomitant]
     Indication: ESSENTIAL HYPERTENSION
     Dosage: 95MG
     Route: 048
  3. CARMEN [Concomitant]
     Indication: ESSENTIAL HYPERTENSION
     Dosage: 10MG
     Route: 048
  4. JANUVIA [Concomitant]
     Indication: ESSENTIAL HYPERTENSION
     Dosage: 5MG
     Route: 048

REACTIONS (1)
  - COAGULOPATHY [None]
